FAERS Safety Report 5486006-2 (Version None)
Quarter: 2007Q4

REPORT INFORMATION
  Report Type: 
  Country: None (occurrence: None)
  Receive Date: 20071012
  Receipt Date: 20071005
  Transmission Date: 20080405
  Serious: Yes (Other)
  Sender: FDA-Public Use
  Company Number: WAES 0708USA02291

PATIENT
  Age: 50 Year
  Sex: Female

DRUGS (3)
  1. HYZAAR [Suspect]
     Indication: HYPERTENSION
     Dosage: 50/12.5 MG/DAILY/PO
     Route: 048
     Dates: start: 20070615, end: 20070628
  2. CANDESARTAN CILEXETIL [Concomitant]
  3. DEPAS [Concomitant]

REACTIONS (4)
  - HEADACHE [None]
  - MUSCULOSKELETAL STIFFNESS [None]
  - OEDEMA [None]
  - SOMNOLENCE [None]
